FAERS Safety Report 24267424 (Version 1)
Quarter: 2024Q3

REPORT INFORMATION
  Report Type: Spontaneous
  Country: US (occurrence: US)
  Receive Date: 20240830
  Receipt Date: 20240830
  Transmission Date: 20241017
  Serious: No
  Sender: ROCHE
  Company Number: US-ROCHE-10000064945

PATIENT

DRUGS (1)
  1. CATHFLO ACTIVASE [Suspect]
     Active Substance: ALTEPLASE
     Indication: Product used for unknown indication
     Dosage: CONTINUOUS DRIP FOR 48 HOURS AND GETTING 1 MG PER HOUR. A BAG OF 24 MG PER 250 ML RECONSTITUTED IN 0
     Route: 042

REACTIONS (2)
  - Product preparation error [Unknown]
  - No adverse event [Unknown]
